FAERS Safety Report 9343951 (Version 8)
Quarter: 2013Q4

REPORT INFORMATION
  Report Type: Report from Study
  Country: JP (occurrence: JP)
  Receive Date: 20130612
  Receipt Date: 20131119
  Transmission Date: 20140711
  Serious: Yes (Other)
  Sender: FDA-Public Use
  Company Number: JP-UCBSA-088082

PATIENT
  Age: 61 Year
  Sex: Female
  Weight: 64.2 kg

DRUGS (17)
  1. CERTOLIZUMAB PEGOL [Suspect]
     Indication: RHEUMATOID ARTHRITIS
     Dosage: RESCUE THERAPY
     Route: 058
     Dates: start: 20120828, end: 20130521
  2. CERTOLIZUMAB PEGOL [Suspect]
     Indication: RHEUMATOID ARTHRITIS
     Dosage: CDP870: 200 MG/2WEEKS OR PLACEBO
     Route: 058
     Dates: start: 20120313, end: 2012
  3. TACROLIMUS HYDRATE [Suspect]
     Indication: RHEUMATOID ARTHRITIS
     Route: 048
     Dates: start: 20130212, end: 201307
  4. ISONIAZIDE [Concomitant]
     Route: 048
     Dates: start: 20120217
  5. FOLIC ACID [Concomitant]
     Route: 048
     Dates: start: 20120316
  6. METHOTREXATE [Concomitant]
     Route: 048
     Dates: start: 20120314, end: 20120404
  7. METHOTREXATE [Concomitant]
     Route: 048
     Dates: start: 20120411, end: 20120503
  8. METHOTREXATE [Concomitant]
     Route: 048
     Dates: start: 20120509, end: 20130212
  9. METHOTREXATE [Concomitant]
     Route: 048
     Dates: start: 2013, end: 20130212
  10. LOXOPROFEN SODIUM HYDRATE [Concomitant]
     Indication: RHEUMATOID ARTHRITIS
     Route: 062
     Dates: start: 20120621
  11. LOXOPROFEN SODIUM HYDRATE [Concomitant]
     Indication: RHEUMATOID ARTHRITIS
     Route: 061
     Dates: start: 20120703
  12. MIRABEGRON [Concomitant]
     Indication: CYSTITIS
     Route: 048
     Dates: start: 20130326
  13. LINAGLIPTIN [Concomitant]
     Indication: DIABETES MELLITUS
     Route: 048
     Dates: start: 20130502, end: 2013
  14. METFORMIN HYDROCHLORIDE [Concomitant]
     Indication: DIABETES MELLITUS
     Route: 048
     Dates: start: 20071101, end: 20120601
  15. METFORMIN HYDROCHLORIDE [Concomitant]
     Indication: DIABETES MELLITUS
     Route: 048
     Dates: start: 20120614, end: 20130530
  16. METFORMIN HYDROCHLORIDE [Concomitant]
     Indication: DIABETES MELLITUS
     Dosage: DAILY DOSE: 1000 MG
     Route: 048
     Dates: start: 20130530
  17. TELMISARTAN [Concomitant]
     Indication: HYPERTENSION
     Route: 048
     Dates: start: 20071101

REACTIONS (2)
  - Breast cancer [Recovered/Resolved]
  - Diabetes mellitus [Recovered/Resolved]
